FAERS Safety Report 17217571 (Version 1)
Quarter: 2019Q4

REPORT INFORMATION
  Report Type: Spontaneous
  Country: US (occurrence: US)
  Receive Date: 20191206
  Receipt Date: 20191206
  Transmission Date: 20200122
  Serious: No
  Sender: FDA-Public Use
  Company Number: None

PATIENT
  Sex: Male

DRUGS (1)
  1. CINACALCET HCL 30MG CIPLA USA [Suspect]
     Active Substance: CINACALCET HYDROCHLORIDE
     Indication: HYPERPARATHYROIDISM SECONDARY
     Dosage: ?          OTHER FREQUENCY:FOUR TIMES A WEEK;?
     Route: 048
     Dates: start: 20191123

REACTIONS (1)
  - Disorientation [None]
